FAERS Safety Report 24282726 (Version 2)
Quarter: 2024Q3

REPORT INFORMATION
  Report Type: Spontaneous
  Country: CZ (occurrence: CZ)
  Receive Date: 20240904
  Receipt Date: 20240919
  Transmission Date: 20241017
  Serious: Yes (Hospitalization, Other)
  Sender: TEVA
  Company Number: None

PATIENT
  Age: 54 Year
  Sex: Female

DRUGS (1)
  1. AZITHROMYCIN [Suspect]
     Active Substance: AZITHROMYCIN
     Indication: Catarrh
     Route: 065
     Dates: start: 20240701, end: 20240703

REACTIONS (7)
  - Rash macular [Recovering/Resolving]
  - Genital erosion [Recovering/Resolving]
  - Erythema multiforme [Recovering/Resolving]
  - Toxic epidermal necrolysis [Recovering/Resolving]
  - Mucosal erosion [Recovering/Resolving]
  - Pain [Recovering/Resolving]
  - Scab [Recovering/Resolving]

NARRATIVE: CASE EVENT DATE: 20240704
